FAERS Safety Report 11051206 (Version 4)
Quarter: 2015Q2

REPORT INFORMATION
  Report Type: Spontaneous
  Country: BR (occurrence: BR)
  Receive Date: 20150421
  Receipt Date: 20150608
  Transmission Date: 20150821
  Serious: Yes (Hospitalization)
  Sender: FDA-Public Use
  Company Number: BR-PFIZER INC-2015134206

PATIENT
  Age: 41 Year
  Sex: Female
  Weight: 62 kg

DRUGS (5)
  1. LYRICA [Suspect]
     Active Substance: PREGABALIN
     Indication: SPINAL PAIN
     Dosage: 75 MG, DAILY
     Route: 048
     Dates: start: 2014
  2. LYRICA [Suspect]
     Active Substance: PREGABALIN
     Indication: NEURALGIA
     Dosage: 75 MG, 2X/DAY
     Route: 048
     Dates: start: 2014
  3. AMITRIPTYLINE [Suspect]
     Active Substance: AMITRIPTYLINE
     Indication: PAIN
     Dosage: 25 MG, DAILY
     Dates: start: 2014
  4. VITAMIN B [Concomitant]
     Active Substance: VITAMIN B
     Indication: NERVE INJURY
     Dosage: 1 DF, DAILY
     Dates: start: 201406
  5. VITAMIN D [Concomitant]
     Active Substance: CHOLECALCIFEROL
     Indication: NERVE INJURY
     Dosage: 1 DF, DAILY
     Dates: start: 201403

REACTIONS (5)
  - Drug ineffective [Not Recovered/Not Resolved]
  - Constipation [Not Recovered/Not Resolved]
  - Alopecia [Not Recovered/Not Resolved]
  - Sciatic nerve neuropathy [Not Recovered/Not Resolved]
  - Dizziness [Not Recovered/Not Resolved]

NARRATIVE: CASE EVENT DATE: 2014
